FAERS Safety Report 10745260 (Version 1)
Quarter: 2015Q1

REPORT INFORMATION
  Report Type: Report from Study
  Country: US (occurrence: US)
  Receive Date: 20150128
  Receipt Date: 20150128
  Transmission Date: 20150721
  Serious: No
  Sender: FDA-Public Use
  Company Number: US-AMGEN-USASL2015007137

PATIENT
  Age: 61 Year
  Sex: Female

DRUGS (1)
  1. ENBREL [Suspect]
     Active Substance: ETANERCEPT
     Indication: PSORIASIS
     Dosage: 50 MG, QWK
     Route: 065
     Dates: start: 20140501, end: 20150103

REACTIONS (7)
  - Sinus congestion [Recovered/Resolved]
  - Headache [Recovered/Resolved]
  - Skin plaque [Not Recovered/Not Resolved]
  - Oral herpes [Recovered/Resolved]
  - Candida infection [Recovered/Resolved]
  - Ocular discomfort [Recovered/Resolved]
  - Cough [Recovered/Resolved]

NARRATIVE: CASE EVENT DATE: 20140501
